FAERS Safety Report 24893603 (Version 2)
Quarter: 2025Q1

REPORT INFORMATION
  Report Type: Spontaneous
  Country: AU (occurrence: AU)
  Receive Date: 20250128
  Receipt Date: 20250225
  Transmission Date: 20250409
  Serious: Yes (Death, Hospitalization, Other)
  Sender: GILEAD
  Company Number: AU-GILEAD-2023-0649868AA

PATIENT
  Age: 74 Year
  Sex: Female

DRUGS (1)
  1. VEKLURY [Suspect]
     Active Substance: REMDESIVIR
     Indication: SARS-CoV-2 test positive
     Route: 065
     Dates: end: 20220725

REACTIONS (5)
  - Abdominal pain [Fatal]
  - Drug-induced liver injury [Fatal]
  - Liver function test abnormal [Fatal]
  - Loss of consciousness [Fatal]
  - Vomiting [Fatal]

NARRATIVE: CASE EVENT DATE: 20220722
